FAERS Safety Report 4631380-X (Version None)
Quarter: 2005Q2

REPORT INFORMATION
  Report Type: 
  Country: None (occurrence: None)
  Receive Date: 20050407
  Receipt Date: 20050401
  Transmission Date: 20051028
  Serious: Yes (Other)
  Sender: FDA-Public Use
  Company Number: 430021K05USA

PATIENT
  Age: 29 Year
  Sex: Female

DRUGS (1)
  1. NOVANTRONE [Suspect]
     Indication: MULTIPLE SCLEROSIS

REACTIONS (5)
  - ALOPECIA [None]
  - CONTUSION [None]
  - EJECTION FRACTION DECREASED [None]
  - HAIR TEXTURE ABNORMAL [None]
  - POST PROCEDURAL COMPLICATION [None]
